FAERS Safety Report 9952680 (Version 2)
Quarter: 2014Q1

REPORT INFORMATION
  Report Type: Spontaneous
  Country: US (occurrence: US)
  Receive Date: 20140304
  Receipt Date: 20140304
  Transmission Date: 20141002
  Serious: No
  Sender: FDA-Public Use
  Company Number: US-LUNDBECK-DKLU1094795

PATIENT
  Sex: Male

DRUGS (2)
  1. ONFI [Suspect]
     Indication: EPILEPSY
     Dates: start: 20130202
  2. ONFI [Suspect]
     Indication: LENNOX-GASTAUT SYNDROME

REACTIONS (1)
  - Tremor [Unknown]
